FAERS Safety Report 9416242 (Version 1)
Quarter: 2013Q3

REPORT INFORMATION
  Report Type: Spontaneous
  Country: CA (occurrence: CA)
  Receive Date: 20130724
  Receipt Date: 20130724
  Transmission Date: 20140515
  Serious: Yes (Hospitalization)
  Sender: FDA-Public Use
  Company Number: CA-AMGEN-CANSP2013041730

PATIENT
  Age: 76 Year
  Sex: Female
  Weight: 52.61 kg

DRUGS (4)
  1. PROLIA [Suspect]
     Indication: OSTEOPOROSIS
     Dosage: 60 MG, UNK
     Route: 058
     Dates: start: 20120717
  2. SYNTHROID [Concomitant]
     Dosage: 0.088 UNK, UNK
     Route: 048
  3. PANTOLOC                           /01263204/ [Concomitant]
     Dosage: 40 UNK, UNK
     Route: 048
  4. CALCIUM 500+D [Concomitant]
     Dosage: 500/400

REACTIONS (2)
  - Fistula [Recovering/Resolving]
  - Phlebitis [Recovered/Resolved]
